FAERS Safety Report 10682253 (Version 1)
Quarter: 2014Q4

REPORT INFORMATION
  Report Type: Spontaneous
  Country: US (occurrence: None)
  Receive Date: 20141229
  Receipt Date: 20141229
  Transmission Date: 20150529
  Serious: Yes (Other)
  Sender: FDA-Public Use
  Company Number: None

PATIENT
  Age: 58 Year
  Sex: Female
  Weight: 75.75 kg

DRUGS (1)
  1. STROMECTOL [Suspect]
     Active Substance: IVERMECTIN
     Indication: INFECTION PARASITIC
     Dosage: 2 PILLS ONCE A WEEK  (2) 3 MG PILLS/WEE  INTO THE EYE
     Dates: start: 20141210, end: 20141218

REACTIONS (2)
  - Photopsia [None]
  - Vitreous floaters [None]

NARRATIVE: CASE EVENT DATE: 20141217
